FAERS Safety Report 14484994 (Version 4)
Quarter: 2019Q3

REPORT INFORMATION
  Report Type: Spontaneous
  Country: US (occurrence: US)
  Receive Date: 20180205
  Receipt Date: 20190819
  Transmission Date: 20191004
  Serious: No
  Sender: FDA-Public Use
  Company Number: US-PFIZER INC-2017483702

PATIENT
  Age: 59 Year
  Sex: Female

DRUGS (12)
  1. DOCETAXEL-SAGENT [Suspect]
     Active Substance: DOCETAXEL
     Indication: TRIPLE NEGATIVE BREAST CANCER
     Dosage: 75 MG, CYCLIC (4 CYCLES, EVERY 3 WEEKS)
     Dates: start: 20130904, end: 20131120
  2. POTASSIUM [Concomitant]
     Active Substance: POTASSIUM
     Dosage: UNK
     Dates: start: 2010
  3. CALCIUM [Concomitant]
     Active Substance: CALCIUM
     Dosage: UNK
     Dates: start: 2010
  4. NEOSAR [Concomitant]
     Active Substance: CYCLOPHOSPHAMIDE
     Indication: CHEMOTHERAPY
     Dosage: UNK
  5. TAXOTERE [Concomitant]
     Active Substance: DOCETAXEL
     Indication: CHEMOTHERAPY
     Dosage: UNK
  6. COZAAR [Concomitant]
     Active Substance: LOSARTAN POTASSIUM
     Dosage: UNK
     Dates: start: 2005
  7. DOCETAXEL. [Suspect]
     Active Substance: DOCETAXEL
     Indication: TRIPLE NEGATIVE BREAST CANCER
     Dosage: 75 MG, CYCLIC (4 CYCLES, EVERY 3 WEEKS)
     Dates: start: 20130904, end: 20131120
  8. AMLODIPINE [Concomitant]
     Active Substance: AMLODIPINE BESYLATE
     Dosage: UNK
     Dates: start: 2010
  9. HYDROCHLOROTHIAZIDE. [Concomitant]
     Active Substance: HYDROCHLOROTHIAZIDE
     Dosage: UNK
     Dates: start: 2010
  10. VITAMIN D [Concomitant]
     Active Substance: VITAMIN D NOS
     Dosage: UNK
     Dates: start: 2010
  11. CYTOXAN [Concomitant]
     Active Substance: CYCLOPHOSPHAMIDE
     Indication: CHEMOTHERAPY
     Dosage: UNK
  12. DYAZIDE [Concomitant]
     Active Substance: HYDROCHLOROTHIAZIDE\TRIAMTERENE
     Dosage: UNK
     Dates: start: 2010

REACTIONS (5)
  - Alopecia [Unknown]
  - Hair texture abnormal [Unknown]
  - Hair disorder [Unknown]
  - Hair colour changes [Unknown]
  - Madarosis [Unknown]

NARRATIVE: CASE EVENT DATE: 201406
